FAERS Safety Report 5814434-1 (Version None)
Quarter: 2008Q3

REPORT INFORMATION
  Report Type: 
  Country: None (occurrence: None)
  Receive Date: 20080718
  Receipt Date: 20080707
  Transmission Date: 20090109
  Serious: Yes (Hospitalization, Other)
  Sender: FDA-Public Use
  Company Number: PHNU2007DE03548

PATIENT
  Sex: Female
  Weight: 63 kg

DRUGS (11)
  1. EXFORGE [Suspect]
     Indication: HYPERTENSION
     Dosage: 1 DF, QD
     Route: 048
     Dates: start: 20070921
  2. METOPROLOL TARTRATE [Concomitant]
     Indication: HYPERTENSION
     Dosage: 1 DF, BID
  3. TORSEMIDE [Concomitant]
     Indication: CARDIAC FAILURE
     Dosage: 1 DF, QD
  4. CARBIDOPA + LEVODOPA [Concomitant]
     Indication: RESTLESS LEGS SYNDROME
     Dosage: 1 DF, QD
  5. FORMOTEROL FUMARATE [Concomitant]
     Dosage: UNK, PRN
  6. ACETYLSALICYLIC ACID SRT [Concomitant]
     Dosage: 1 DF, QD
  7. MAGNESIUM VERLA - FOR INJECTION [Concomitant]
     Dosage: 1 DF, QD
  8. CANDESARTAN [Concomitant]
     Dosage: 1 DF, QD
  9. INSULIN [Concomitant]
     Dosage: 10-0-8
  10. PHENPROCOUMON [Concomitant]
  11. BIFITERAL ^PHILIPS^ [Concomitant]
     Dosage: UNK

REACTIONS (26)
  - ALPHA HYDROXYBUTYRATE DEHYDROGENASE INCREASED [None]
  - ANGINA PECTORIS [None]
  - AORTIC VALVE INCOMPETENCE [None]
  - ATRIAL FIBRILLATION [None]
  - BLOOD CREATINE PHOSPHOKINASE MB INCREASED [None]
  - BLOOD GLUCOSE INCREASED [None]
  - BLOOD LACTATE DEHYDROGENASE INCREASED [None]
  - BLOOD POTASSIUM INCREASED [None]
  - BLOOD SODIUM DECREASED [None]
  - BREATH SOUNDS ABNORMAL [None]
  - C-REACTIVE PROTEIN INCREASED [None]
  - CARDIAC FAILURE [None]
  - CHRONIC OBSTRUCTIVE PULMONARY DISEASE [None]
  - COAGULATION TEST ABNORMAL [None]
  - DIZZINESS [None]
  - DYSPNOEA [None]
  - FULL BLOOD COUNT ABNORMAL [None]
  - GENERAL PHYSICAL HEALTH DETERIORATION [None]
  - GLYCOSYLATED HAEMOGLOBIN INCREASED [None]
  - HYPERTENSIVE CRISIS [None]
  - MITRAL VALVE STENOSIS [None]
  - POLYNEUROPATHY [None]
  - TACHYARRHYTHMIA [None]
  - TACHYCARDIA [None]
  - VENTRICULAR ARRHYTHMIA [None]
  - VISUAL IMPAIRMENT [None]
